FAERS Safety Report 23580933 (Version 1)
Quarter: 2024Q1

REPORT INFORMATION
  Report Type: Spontaneous
  Country: US (occurrence: US)
  Receive Date: 20240229
  Receipt Date: 20240229
  Transmission Date: 20240409
  Serious: Yes (Other)
  Sender: FDA-Public Use
  Company Number: US-MAYNE PHARMA-2024MYN000042

PATIENT

DRUGS (3)
  1. DORYX [Suspect]
     Active Substance: DOXYCYCLINE HYCLATE
     Indication: Product used for unknown indication
     Dosage: UNK
     Route: 065
  2. BETAMETHASONE [Concomitant]
     Active Substance: BETAMETHASONE\BETAMETHASONE DIPROPIONATE
     Indication: HELLP syndrome
     Route: 065
  3. MAGNESIUM [Concomitant]
     Active Substance: MAGNESIUM
     Indication: HELLP syndrome
     Route: 042

REACTIONS (5)
  - Acute kidney injury [Unknown]
  - Thrombocytopenia [Unknown]
  - Ileus [Unknown]
  - Hypertransaminasaemia [Unknown]
  - Exposure during pregnancy [Recovered/Resolved]
